FAERS Safety Report 7174156-4 (Version None)
Quarter: 2010Q4

REPORT INFORMATION
  Report Type: 
  Country: None (occurrence: None)
  Receive Date: 20101202
  Receipt Date: 20101119
  Transmission Date: 20110411
  Serious: Yes (Other)
  Sender: FDA-Public Use
  Company Number: B0686546A

PATIENT
  Age: 25 Year
  Sex: Male

DRUGS (2)
  1. ZOVIRAX [Suspect]
     Indication: HERPES ZOSTER
  2. HYDROCODONE BITARTRATE + ACETAMINOPHEN [Concomitant]

REACTIONS (8)
  - BLOOD CREATINE INCREASED [None]
  - CORNEAL OEDEMA [None]
  - ERYTHEMA [None]
  - NEPHROPATHY TOXIC [None]
  - PAIN [None]
  - PRURITUS [None]
  - RASH VESICULAR [None]
  - VISION BLURRED [None]
